FAERS Safety Report 9934778 (Version 1)
Quarter: 2014Q1

REPORT INFORMATION
  Report Type: Spontaneous
  Country: US (occurrence: US)
  Receive Date: 20140228
  Receipt Date: 20140228
  Transmission Date: 20141002
  Serious: Yes (Hospitalization)
  Sender: FDA-Public Use
  Company Number: US-GLAXOSMITHKLINE-A1061899A

PATIENT
  Age: 46 Year
  Sex: Female

DRUGS (7)
  1. SEREVENT [Suspect]
     Indication: ASTHMA
     Dosage: 1PUFF TWICE PER DAY
     Route: 055
     Dates: start: 2009, end: 2012
  2. ADVAIR [Suspect]
     Indication: ASTHMA
     Dosage: 1PUFF TWICE PER DAY
     Route: 055
     Dates: start: 201311
  3. PRO-AIR [Concomitant]
  4. ALBUTEROL [Concomitant]
  5. IPRATROPIUM [Concomitant]
  6. BUSPIRONE [Concomitant]
  7. IBUPROFEN [Concomitant]

REACTIONS (4)
  - Respiratory tract oedema [Unknown]
  - Acne [Recovered/Resolved]
  - Hypersensitivity [Unknown]
  - Dyspnoea [Unknown]
